FAERS Safety Report 4648963-3 (Version None)
Quarter: 2005Q2

REPORT INFORMATION
  Report Type: 
  Country: None (occurrence: None)
  Receive Date: 20050427
  Receipt Date: 20050411
  Transmission Date: 20051028
  Serious: Yes (Hospitalization, Disabling, Other)
  Sender: FDA-Public Use
  Company Number: USA050495341

PATIENT
  Age: 26 Year
  Sex: Male

DRUGS (2)
  1. HUMALOG [Suspect]
     Indication: DIABETES MELLITUS
  2. HUMULIN N [Suspect]
     Indication: DIABETES MELLITUS

REACTIONS (13)
  - AGGRESSION [None]
  - BLOOD GLUCOSE INCREASED [None]
  - CARDIOVASCULAR DISORDER [None]
  - DISTURBANCE IN ATTENTION [None]
  - DRUG INEFFECTIVE [None]
  - DYSPHAGIA [None]
  - FOREIGN BODY TRAUMA [None]
  - HYPOGLYCAEMIA [None]
  - HYPOKINESIA [None]
  - LUNG OPERATION [None]
  - MEMORY IMPAIRMENT [None]
  - NEUROPATHY [None]
  - PHARMACEUTICAL PRODUCT COMPLAINT [None]
